FAERS Safety Report 8393562-3 (Version None)
Quarter: 2012Q2

REPORT INFORMATION
  Report Type: 
  Country: None (occurrence: None)
  Receive Date: 20120530
  Receipt Date: 20120511
  Transmission Date: 20120825
  Serious: Yes (Hospitalization)
  Sender: FDA-Public Use
  Company Number: NL-AMGEN-NLDCT2012032968

PATIENT
  Sex: Male
  Weight: 93 kg

DRUGS (7)
  1. ETANERCEPT [Suspect]
     Indication: PRODUCT USED FOR UNKNOWN INDICATION
     Dosage: 50 MG, QWK
     Dates: start: 20060901
  2. NIFEDIPINE [Concomitant]
     Dosage: 30 MG, 1X/DAY
  3. PANTOPRAZOLE [Concomitant]
     Dosage: 20 MG, 1X/DAY
  4. HYDROCHLOROTHIAZIDE [Concomitant]
     Dosage: 12.5 MG, 1X/DAY
  5. ATORVASTATIN CALCIUM [Concomitant]
     Dosage: 40 MG, 1X/DAY
  6. ASCAL                              /00002702/ [Concomitant]
     Dosage: 80 MG, 1X/DAY
  7. METOPROLOL TARTRATE [Concomitant]
     Dosage: 25 MG, 1X/DAY

REACTIONS (2)
  - PROSTATITIS [None]
  - PYELONEPHRITIS [None]
